FAERS Safety Report 14174651 (Version 1)
Quarter: 2017Q4

REPORT INFORMATION
  Report Type: Spontaneous
  Country: US (occurrence: US)
  Receive Date: 20171109
  Receipt Date: 20171109
  Transmission Date: 20180321
  Serious: Yes (Hospitalization, Other)
  Sender: FDA-Public Use
  Company Number: US-ASTRAZENECA-2017SF12490

PATIENT
  Age: 0 Year
  Sex: Male
  Weight: 12.2 kg

DRUGS (2)
  1. SYNAGIS [Suspect]
     Active Substance: PALIVIZUMAB
     Indication: HYPERTONIA
     Dosage: EVERY 28 DAYS
     Route: 030
     Dates: start: 2016, end: 201703
  2. SYNAGIS [Suspect]
     Active Substance: PALIVIZUMAB
     Indication: CARNITINE DEFICIENCY
     Dosage: EVERY 28 DAYS
     Route: 030
     Dates: start: 2016, end: 201703

REACTIONS (6)
  - Septic encephalopathy [Recovered/Resolved]
  - Aphasia [Not Recovered/Not Resolved]
  - Influenza [Recovered/Resolved]
  - Product use in unapproved indication [Recovered/Resolved]
  - Off label use [Recovered/Resolved]
  - Gastrooesophageal reflux disease [Not Recovered/Not Resolved]

NARRATIVE: CASE EVENT DATE: 2016
